FAERS Safety Report 19258460 (Version 1)
Quarter: 2021Q2

REPORT INFORMATION
  Report Type: Spontaneous
  Country: US (occurrence: US)
  Receive Date: 20210514
  Receipt Date: 20210514
  Transmission Date: 20210717
  Serious: Yes (Hospitalization)
  Sender: FDA-Public Use
  Company Number: None

PATIENT
  Age: 79 Year
  Sex: Female

DRUGS (12)
  1. HYDROCO/APAP [Concomitant]
     Active Substance: ACETAMINOPHEN\HYDROCODONE
  2. SILDENAFIL 20 MG [Suspect]
     Active Substance: SILDENAFIL
     Indication: PULMONARY ARTERIAL HYPERTENSION
     Route: 048
     Dates: start: 20200918
  3. ESOMEPRA MAG [Concomitant]
  4. LISNOPRIL [Concomitant]
  5. CALCIUM [Concomitant]
     Active Substance: CALCIUM
  6. MELOXICAM. [Concomitant]
     Active Substance: MELOXICAM
  7. GABAPENTIN. [Concomitant]
     Active Substance: GABAPENTIN
  8. VITAMIN B12 [Concomitant]
     Active Substance: CYANOCOBALAMIN
  9. LEVOTHYROXIN [Concomitant]
     Active Substance: LEVOTHYROXINE
  10. SPIRONOLACT [Concomitant]
     Active Substance: SPIRONOLACTONE
  11. METHYLPRED [Concomitant]
     Active Substance: METHYLPREDNISOLONE
  12. SIMVASTATIN. [Concomitant]
     Active Substance: SIMVASTATIN

REACTIONS (2)
  - Anaemia [None]
  - Therapy interrupted [None]

NARRATIVE: CASE EVENT DATE: 20210512
